FAERS Safety Report 15371008 (Version 1)
Quarter: 2018Q3

REPORT INFORMATION
  Report Type: Spontaneous
  Country: AU (occurrence: AU)
  Receive Date: 20180911
  Receipt Date: 20180911
  Transmission Date: 20181010
  Serious: Yes (Other)
  Sender: FDA-Public Use
  Company Number: AU-GLAXOSMITHKLINE-AU2018GSK159736

PATIENT

DRUGS (1)
  1. TAFENOQUINE [Suspect]
     Active Substance: TAFENOQUINE
     Indication: PRODUCT USED FOR UNKNOWN INDICATION
     Dosage: 200 MG, UNK
     Dates: start: 20000217, end: 20000219

REACTIONS (60)
  - Muscle tightness [Unknown]
  - Swelling [Unknown]
  - Abnormal dreams [Unknown]
  - Suicidal ideation [Unknown]
  - Dengue fever [Unknown]
  - Seizure [Unknown]
  - Amnesia [Not Recovered/Not Resolved]
  - Hypothalamo-pituitary disorder [Unknown]
  - Cerebrovascular accident [Unknown]
  - Anger [Not Recovered/Not Resolved]
  - Disturbance in attention [Not Recovered/Not Resolved]
  - Paranoia [Unknown]
  - VIIIth nerve injury [Unknown]
  - Gastrointestinal disorder [Unknown]
  - Speech disorder [Unknown]
  - Thyroid gland injury [Unknown]
  - Autoimmune disorder [Unknown]
  - Auditory disorder [Unknown]
  - Myalgia [Unknown]
  - Post-traumatic stress disorder [Unknown]
  - Cognitive disorder [Not Recovered/Not Resolved]
  - Multiple sclerosis [Not Recovered/Not Resolved]
  - Brain oedema [Unknown]
  - Anxiety [Not Recovered/Not Resolved]
  - Personality change [Unknown]
  - Mass [Unknown]
  - Depressed mood [Unknown]
  - Weight decreased [Unknown]
  - Nausea [Unknown]
  - Malaise [Unknown]
  - Headache [Recovered/Resolved]
  - Tinnitus [Recovered/Resolved]
  - Vertigo [Recovered/Resolved]
  - Confusional state [Not Recovered/Not Resolved]
  - Impulsive behaviour [Unknown]
  - Restlessness [Not Recovered/Not Resolved]
  - Mental disorder [Unknown]
  - Dizziness [Unknown]
  - Dysphemia [Unknown]
  - Muscular weakness [Unknown]
  - Dehydration [Not Recovered/Not Resolved]
  - Asthenia [Unknown]
  - Brain injury [Unknown]
  - Neurotoxicity [Unknown]
  - Mood altered [Unknown]
  - Agitation [Not Recovered/Not Resolved]
  - Nightmare [Not Recovered/Not Resolved]
  - Oropharyngeal spasm [Not Recovered/Not Resolved]
  - Condition aggravated [Unknown]
  - Fall [Unknown]
  - Sleep disorder [Unknown]
  - Apnoea [Not Recovered/Not Resolved]
  - Malaria [Unknown]
  - Ill-defined disorder [Unknown]
  - Balance disorder [Unknown]
  - Depression [Unknown]
  - Abnormal behaviour [Unknown]
  - Hypervigilance [Not Recovered/Not Resolved]
  - Photophobia [Not Recovered/Not Resolved]
  - Tremor [Not Recovered/Not Resolved]

NARRATIVE: CASE EVENT DATE: 2001
